FAERS Safety Report 19983462 (Version 2)
Quarter: 2022Q1

REPORT INFORMATION
  Report Type: Report from Study
  Country: CA (occurrence: None)
  Receive Date: 20211021
  Receipt Date: 20220113
  Transmission Date: 20220423
  Serious: Yes (Hospitalization)
  Sender: FDA-Public Use
  Company Number: 2021A774303

PATIENT
  Age: 63 Year
  Sex: Female

DRUGS (2)
  1. ROSUVASTATIN [Suspect]
     Active Substance: ROSUVASTATIN
     Indication: Hypercholesterolaemia
     Dosage: 20.0MG UNKNOWN
     Route: 065
     Dates: start: 20200804
  2. TALTZ [Suspect]
     Active Substance: IXEKIZUMAB
     Indication: Psoriasis
     Dosage: 80.0MG UNKNOWN
     Route: 058
     Dates: start: 20191029

REACTIONS (21)
  - Bladder cancer [Recovered/Resolved]
  - Cystitis [Unknown]
  - Furuncle [Unknown]
  - Haemorrhage [Unknown]
  - Injection site pain [Unknown]
  - Heart rate increased [Unknown]
  - Dyspnoea [Unknown]
  - Adrenal disorder [Unknown]
  - Contusion [Unknown]
  - Vaginal haemorrhage [Unknown]
  - Anal haemorrhage [Unknown]
  - Abdominal pain [Unknown]
  - Swelling face [Unknown]
  - Rash [Unknown]
  - Blood glucose increased [Unknown]
  - Diabetes mellitus [Unknown]
  - Nausea [Unknown]
  - Blood potassium decreased [Unknown]
  - Peripheral swelling [Unknown]
  - Urine odour abnormal [Unknown]
  - Renal disorder [Unknown]

NARRATIVE: CASE EVENT DATE: 20210701
